FAERS Safety Report 9981141 (Version 2)
Quarter: 2014Q2

REPORT INFORMATION
  Report Type: Spontaneous
  Country: US (occurrence: US)
  Receive Date: 20140307
  Receipt Date: 20140416
  Transmission Date: 20141212
  Serious: Yes (Hospitalization, Other)
  Sender: FDA-Public Use
  Company Number: US-ASTELLAS-2014US002152

PATIENT
  Age: 53 Year
  Sex: Male

DRUGS (2)
  1. PROGRAF [Suspect]
     Indication: HEART TRANSPLANT
     Route: 048
     Dates: start: 1993
  2. PROGRAF [Suspect]
     Indication: RENAL TRANSPLANT
     Route: 048
     Dates: start: 2004

REACTIONS (3)
  - Renal transplant [Recovered/Resolved]
  - Investigation [Unknown]
  - Heart transplant rejection [Recovered/Resolved]
